FAERS Safety Report 7022440-7 (Version None)
Quarter: 2010Q3

REPORT INFORMATION
  Report Type: 
  Country: None (occurrence: None)
  Receive Date: 20100930
  Receipt Date: 20100922
  Transmission Date: 20110219
  Serious: Yes (Hospitalization)
  Sender: FDA-Public Use
  Company Number: US-ELI_LILLY_AND_COMPANY-US201009003366

PATIENT
  Sex: Female
  Weight: 68.027 kg

DRUGS (23)
  1. PRASUGREL HYDROCHLORIDE [Suspect]
     Indication: ACUTE CORONARY SYNDROME
     Dosage: 10 MG, DAILY (1/D)
     Dates: start: 20100823
  2. ASPIRIN [Concomitant]
     Indication: ANTICOAGULANT THERAPY
     Dosage: 325 MG, DAILY (1/D)
     Dates: start: 20100820
  3. ASPIRIN [Concomitant]
     Dosage: 81 MG, DAILY (1/D)
     Route: 048
  4. PLAVIX [Concomitant]
     Dosage: 75 MG, DAILY (1/D)
     Dates: start: 20100820
  5. ASPIRIN [Concomitant]
     Indication: ANTIPLATELET THERAPY
     Dosage: 81 MG, DAILY (1/D)
     Route: 048
     Dates: start: 20100819, end: 20100819
  6. ASPIRIN [Concomitant]
     Dosage: 325 MG, DAILY (1/D)
     Route: 048
     Dates: start: 20100820
  7. IMDUR [Concomitant]
     Indication: ANGINA PECTORIS
     Dosage: 60 MG, 2/D
     Route: 048
     Dates: start: 20100818
  8. ZITHROMAX [Concomitant]
     Indication: PROPHYLAXIS
     Dosage: 500 MG, DAILY (1/D)
     Route: 048
     Dates: start: 20100815, end: 20100820
  9. CALAN [Concomitant]
     Indication: HYPERTENSION
     Dosage: 5 MG, OTHER
     Route: 042
     Dates: start: 20100817, end: 20100817
  10. CALAN [Concomitant]
     Dosage: 240 MG, 3/D
     Route: 048
     Dates: start: 20100816, end: 20100817
  11. CALAN [Concomitant]
     Dosage: 320 MG, 4/D
     Route: 048
     Dates: start: 20100817, end: 20100818
  12. CALAN [Concomitant]
     Dosage: 240 MG, 2/D
     Route: 048
     Dates: start: 20100818, end: 20100826
  13. CALAN [Concomitant]
     Dosage: 120 MG, DAILY (1/D)
     Route: 048
     Dates: start: 20100827
  14. FOLATE [Concomitant]
     Indication: PROPHYLAXIS
     Dosage: 1 MG, DAILY (1/D)
     Route: 048
     Dates: start: 20100818
  15. VITAMIN B-12 [Concomitant]
     Indication: PROPHYLAXIS
     Dosage: 1000 UG, DAILY (1/D)
     Route: 048
     Dates: start: 20100818
  16. PROTONIX [Concomitant]
     Indication: PROPHYLAXIS
     Dosage: 40 MG, DAILY (1/D)
     Route: 048
     Dates: start: 20100817, end: 20100819
  17. PROTONIX [Concomitant]
     Dosage: 40 MG, DAILY (1/D)
     Route: 048
     Dates: start: 20100823, end: 20100823
  18. TOPROL-XL [Concomitant]
     Indication: HYPERTENSION
     Dosage: 50 MG, OTHER
     Route: 048
     Dates: start: 20100817, end: 20100817
  19. VITAMIN D [Concomitant]
     Indication: PROPHYLAXIS
     Dosage: 1000 IU, DAILY (1/D)
     Route: 048
     Dates: start: 20100819
  20. ZOCOR [Concomitant]
     Indication: HYPERLIPIDAEMIA
     Dosage: 5 MG, DAILY (1/D)
     Route: 048
     Dates: start: 20100821
  21. PULMICORT RESPULES [Concomitant]
     Indication: CHRONIC OBSTRUCTIVE PULMONARY DISEASE
     Dosage: 1 MG, 2/D
     Route: 048
     Dates: start: 20100816, end: 20100826
  22. SOLU-MEDROL [Concomitant]
     Indication: CHRONIC OBSTRUCTIVE PULMONARY DISEASE
     Dosage: 160 MG, 4/D
     Route: 042
     Dates: start: 20100815, end: 20100819
  23. SOLU-MEDROL [Concomitant]
     Dosage: 40 MG, DAILY (1/D)
     Route: 042
     Dates: start: 20100821, end: 20100823

REACTIONS (2)
  - CAROTID ARTERY DISEASE [None]
  - MYOCARDIAL INFARCTION [None]
